FAERS Safety Report 4265290-7 (Version None)
Quarter: 2004Q1

REPORT INFORMATION
  Report Type: 
  Country: None (occurrence: None)
  Receive Date: 20040107
  Receipt Date: 20040107
  Transmission Date: 20041129
  Serious: No
  Sender: FDA-Public Use
  Company Number: None

PATIENT

DRUGS (4)
  1. OXYCODONE HCL [Suspect]
  2. PENICILLIN V POTASSIUM [Suspect]
     Dosage: ORAL
     Route: 048
  3. BISMUTH 524 MG/30ML [Suspect]
     Dosage: ORAL
     Route: 048
  4. CEFIXIME 100MG/5ML [Suspect]
     Dosage: ORAL
     Route: 048

REACTIONS (1)
  - MEDICATION ERROR [None]
